FAERS Safety Report 23981720 (Version 1)
Quarter: 2024Q2

REPORT INFORMATION
  Report Type: Spontaneous
  Country: US (occurrence: None)
  Receive Date: 20240615
  Receipt Date: 20240615
  Transmission Date: 20240717
  Serious: Yes (Life-Threatening, Disabling)
  Sender: FDA-Public Use
  Company Number: None

PATIENT
  Age: 27 Year
  Sex: Female
  Weight: 67.5 kg

DRUGS (1)
  1. MIRENA [Suspect]
     Active Substance: LEVONORGESTREL
     Indication: Contraception
     Dosage: OTHER QUANTITY : 1 DEVICE;?
     Route: 067
     Dates: start: 20220523, end: 20240520

REACTIONS (3)
  - Product communication issue [None]
  - Breast cancer [None]
  - Breast atrophy [None]

NARRATIVE: CASE EVENT DATE: 20240404
